FAERS Safety Report 4609646-9 (Version None)
Quarter: 2005Q1

REPORT INFORMATION
  Report Type: 
  Country: None (occurrence: None)
  Receive Date: 20050314
  Receipt Date: 20050225
  Transmission Date: 20050727
  Serious: Yes (Life-Threatening)
  Sender: FDA-Public Use
  Company Number: BUS-032005-0010

PATIENT
  Age: 20 Year
  Sex: Male

DRUGS (6)
  1. BUSULFEX [Suspect]
     Indication: BONE MARROW CONDITIONING REGIMEN
     Dosage: 220.8MG/D (55.2 MG/DOSE X 4 TIMES) - IV (5 DOSES TOTAL ADMINISTERED)
     Route: 042
     Dates: start: 20040221, end: 20040222
  2. BUSULFEX [Suspect]
     Indication: CHRONIC MYELOID LEUKAEMIA
     Dosage: 220.8MG/D (55.2 MG/DOSE X 4 TIMES) - IV (5 DOSES TOTAL ADMINISTERED)
     Route: 042
     Dates: start: 20040221, end: 20040222
  3. FLUDARABINE PHOSPHATE [Concomitant]
  4. IMMUNE GLOBULIN INTRAVENOUS (HUMAN) [Concomitant]
  5. METHOTREXATE [Concomitant]
  6. PHENYTOIN SODIUM [Concomitant]

REACTIONS (4)
  - FLUID IMBALANCE [None]
  - HAEMODIALYSIS [None]
  - RENAL FAILURE ACUTE [None]
  - WEIGHT INCREASED [None]
